FAERS Safety Report 7209966-8 (Version None)
Quarter: 2011Q1

REPORT INFORMATION
  Report Type: 
  Country: None (occurrence: None)
  Receive Date: 20110105
  Receipt Date: 20101227
  Transmission Date: 20110831
  Serious: No
  Sender: FDA-Public Use
  Company Number: US-BIOGENIDEC-2010BI044945

PATIENT
  Sex: Female

DRUGS (1)
  1. TYSABRI [Suspect]
     Indication: MULTIPLE SCLEROSIS
     Route: 042
     Dates: start: 20100826

REACTIONS (11)
  - FATIGUE [None]
  - PRURITUS [None]
  - FLUSHING [None]
  - GASTROENTERITIS VIRAL [None]
  - DERMATITIS PSORIASIFORM [None]
  - POOR VENOUS ACCESS [None]
  - NASOPHARYNGITIS [None]
  - DECREASED IMMUNE RESPONSIVENESS [None]
  - FEELING HOT [None]
  - BODY TEMPERATURE INCREASED [None]
  - MULTIPLE SCLEROSIS RELAPSE [None]
